FAERS Safety Report 25491857 (Version 1)
Quarter: 2025Q2

REPORT INFORMATION
  Report Type: Spontaneous
  Country: FI (occurrence: FI)
  Receive Date: 20250630
  Receipt Date: 20250630
  Transmission Date: 20250716
  Serious: Yes (Disabling)
  Sender: TEVA
  Company Number: None

PATIENT
  Age: 28 Year
  Sex: Male

DRUGS (4)
  1. RISPERIDONE [Suspect]
     Active Substance: RISPERIDONE
     Indication: Psychotic disorder
     Route: 048
     Dates: start: 2024, end: 2024
  2. SERTRALINE [Concomitant]
     Active Substance: SERTRALINE HYDROCHLORIDE
     Indication: Anxiety
     Route: 048
     Dates: start: 2025, end: 2025
  3. SERTRALINE [Concomitant]
     Active Substance: SERTRALINE HYDROCHLORIDE
     Indication: Anxiety
     Dosage: FIRST 50X2 AND THEN 50X1 AND THEN 25X1 AND THEN 0.
     Route: 048
     Dates: start: 2025, end: 2025
  4. SERTRALINE [Concomitant]
     Active Substance: SERTRALINE HYDROCHLORIDE
     Indication: Anxiety
     Route: 048
     Dates: start: 2025, end: 2025

REACTIONS (14)
  - Erectile dysfunction [Unknown]
  - Visual impairment [Unknown]
  - Blood testosterone decreased [Unknown]
  - Memory impairment [Unknown]
  - Discomfort [Unknown]
  - Ataxia [Unknown]
  - Feeling abnormal [Unknown]
  - Palpitations [Unknown]
  - Disturbance in sexual arousal [Unknown]
  - Head discomfort [Unknown]
  - Fatigue [Unknown]
  - Sexual dysfunction [Unknown]
  - Cyanosis [Unknown]
  - Blood prolactin increased [Unknown]

NARRATIVE: CASE EVENT DATE: 20240101
